FAERS Safety Report 8844618 (Version 1)
Quarter: 2012Q4

REPORT INFORMATION
  Report Type: Spontaneous
  Country: US (occurrence: None)
  Receive Date: 20121016
  Receipt Date: 20121016
  Transmission Date: 20130627
  Serious: Yes (Hospitalization)
  Sender: FDA-Public Use
  Company Number: None

PATIENT
  Sex: Male
  Weight: 81.8 kg

DRUGS (9)
  1. ASA [Suspect]
     Dosage: CHRONIC
     Route: 048
  2. IBUPROFEN [Suspect]
     Dosage: RECENTLY
  3. BC [Suspect]
     Dosage: RECENTLY
  4. LUMIGAN [Concomitant]
  5. ALPHAGAN [Concomitant]
  6. COMBIGAN [Concomitant]
  7. TRUSOPT [Concomitant]
  8. COSOPT [Concomitant]
  9. K+ ATIVAN [Concomitant]

REACTIONS (5)
  - Acute myocardial infarction [None]
  - Anaemia [None]
  - Haematochezia [None]
  - Duodenitis [None]
  - Ulcer [None]
